FAERS Safety Report 10191963 (Version 1)
Quarter: 2014Q2

REPORT INFORMATION
  Report Type: Spontaneous
  Country: GB (occurrence: None)
  Receive Date: 20140521
  Receipt Date: 20140521
  Transmission Date: 20141212
  Serious: Yes (Other)
  Sender: FDA-Public Use
  Company Number: AUR-APL-2014-05894

PATIENT
  Age: 31 Year
  Sex: Female
  Weight: 53 kg

DRUGS (1)
  1. TERBINAFINE (TERBINAFINE) [Suspect]
     Indication: ONYCHOMYCOSIS
     Route: 048
     Dates: start: 20130328, end: 20130505

REACTIONS (2)
  - Maternal exposure during pregnancy [None]
  - Abortion induced [None]
